FAERS Safety Report 9863196 (Version 1)
Quarter: 2014Q1

REPORT INFORMATION
  Report Type: Spontaneous
  Country: TW (occurrence: TW)
  Receive Date: 20140203
  Receipt Date: 20140203
  Transmission Date: 20141002
  Serious: Yes (Life-Threatening)
  Sender: FDA-Public Use
  Company Number: TW-SA-2014SA010456

PATIENT
  Age: 9 Year
  Sex: Female
  Weight: 48 kg

DRUGS (2)
  1. THYMOGLOBULINE [Suspect]
     Indication: PRODUCT USED FOR UNKNOWN INDICATION
     Route: 065
     Dates: start: 20080915, end: 20080915
  2. NORMAL SALINE [Concomitant]
     Dates: start: 20080915, end: 20080915

REACTIONS (1)
  - Shock [Recovered/Resolved]
